FAERS Safety Report 6526455-4 (Version None)
Quarter: 2009Q4

REPORT INFORMATION
  Report Type: 
  Country: None (occurrence: None)
  Receive Date: 20091223
  Receipt Date: 20091208
  Transmission Date: 20100525
  Serious: Yes (Hospitalization)
  Sender: FDA-Public Use
  Company Number: ALK_01094_2009

PATIENT
  Sex: Male

DRUGS (1)
  1. VIVITROL [Suspect]
     Indication: ALCOHOLISM
     Dosage: 380 MG 1X/MONTH; INTAMUSCULAR
     Route: 030

REACTIONS (2)
  - PELVIC FRACTURE [None]
  - SPORTS INJURY [None]
